FAERS Safety Report 12223414 (Version 1)
Quarter: 2016Q1

REPORT INFORMATION
  Report Type: Spontaneous
  Country: US (occurrence: US)
  Receive Date: 20160330
  Receipt Date: 20160330
  Transmission Date: 20160526
  Serious: Yes (Other)
  Sender: FDA-Public Use
  Company Number: US-TEVA-646841USA

PATIENT
  Sex: Female

DRUGS (1)
  1. COPAXONE [Suspect]
     Active Substance: GLATIRAMER ACETATE
     Indication: MULTIPLE SCLEROSIS
     Dosage: UNKNOWN FORM STRENGTH
     Dates: start: 2014, end: 2016

REACTIONS (4)
  - Fatigue [Recovering/Resolving]
  - Multiple sclerosis [Not Recovered/Not Resolved]
  - Chest pain [Unknown]
  - Palpitations [Unknown]
